FAERS Safety Report 13693501 (Version 1)
Quarter: 2017Q2

REPORT INFORMATION
  Report Type: Spontaneous
  Country: US (occurrence: US)
  Receive Date: 20170626
  Receipt Date: 20170626
  Transmission Date: 20170830
  Serious: No
  Sender: FDA-Public Use
  Company Number: None

PATIENT
  Age: 7 Year
  Sex: Female

DRUGS (2)
  1. CLARITIN [Concomitant]
     Active Substance: LORATADINE
  2. POLYETHELENE GLYCOL 3350 [Suspect]
     Active Substance: POLYETHYLENE GLYCOL 3500
     Indication: CONSTIPATION
     Dosage: OTHER STRENGTH:CAPFUL;QUANTITY:0.5 CAPFUL;?
     Route: 048

REACTIONS (4)
  - Paranoia [None]
  - Surgery [None]
  - Renal disorder [None]
  - Mood swings [None]
